FAERS Safety Report 16601176 (Version 2)
Quarter: 2019Q3

REPORT INFORMATION
  Report Type: Spontaneous
  Country: US (occurrence: US)
  Receive Date: 20190719
  Receipt Date: 20190731
  Transmission Date: 20191004
  Serious: Yes (Hospitalization, Other)
  Sender: FDA-Public Use
  Company Number: US-JNJFOC-20190715385

PATIENT
  Age: 40 Year
  Sex: Female
  Weight: 106.69 kg

DRUGS (1)
  1. INVOKANA [Suspect]
     Active Substance: CANAGLIFLOZIN
     Indication: PRODUCT USED FOR UNKNOWN INDICATION
     Route: 048

REACTIONS (5)
  - Diabetic foot infection [Unknown]
  - Sepsis [Recovered/Resolved]
  - Toe amputation [Unknown]
  - Acute kidney injury [Recovered/Resolved]
  - Osteomyelitis acute [Unknown]

NARRATIVE: CASE EVENT DATE: 20140108
